FAERS Safety Report 19278201 (Version 1)
Quarter: 2021Q2

REPORT INFORMATION
  Report Type: Spontaneous
  Country: US (occurrence: US)
  Receive Date: 20210520
  Receipt Date: 20210520
  Transmission Date: 20210717
  Serious: Yes (Other)
  Sender: FDA-Public Use
  Company Number: US-SUN PHARMACEUTICAL INDUSTRIES LTD-2021R1-297230

PATIENT
  Age: 71 Year
  Sex: Male
  Weight: 91 kg

DRUGS (6)
  1. DEXAMETHASONE. [Suspect]
     Active Substance: DEXAMETHASONE
     Indication: COVID-19
     Dosage: 6 MILLIGRAM, DAILY
     Route: 048
  2. WARFARIN [Interacting]
     Active Substance: WARFARIN
     Dosage: 6 MILLIGRAM, DAILY
     Route: 065
  3. REMDESIVIR. [Suspect]
     Active Substance: REMDESIVIR
     Indication: COVID-19
     Dosage: 100 MILLIGRAM, DAILY
     Route: 042
  4. WARFARIN [Interacting]
     Active Substance: WARFARIN
     Dosage: 7.5 UNK
     Route: 065
  5. WARFARIN [Interacting]
     Active Substance: WARFARIN
     Indication: PULMONARY EMBOLISM
     Dosage: 5 MILLIGRAM, DAILY
     Route: 065
  6. REMDESIVIR. [Suspect]
     Active Substance: REMDESIVIR
     Dosage: 200 MILLIGRAM
     Route: 042

REACTIONS (2)
  - Drug interaction [Unknown]
  - International normalised ratio increased [Unknown]
